FAERS Safety Report 15098070 (Version 2)
Quarter: 2018Q3

REPORT INFORMATION
  Report Type: Spontaneous
  Country: US (occurrence: US)
  Receive Date: 20180702
  Receipt Date: 20180920
  Transmission Date: 20181010
  Serious: No
  Sender: FDA-Public Use
  Company Number: US-IGSA-SR10006443

PATIENT
  Sex: Female
  Weight: 127 kg

DRUGS (2)
  1. VITAMINS                           /00067501/ [Concomitant]
     Active Substance: VITAMINS
  2. GAMUNEX?C [Suspect]
     Active Substance: HUMAN IMMUNOGLOBULIN G
     Indication: CHRONIC INFLAMMATORY DEMYELINATING POLYRADICULONEUROPATHY
     Dosage: 80 MG, Q.M.T.
     Route: 042
     Dates: start: 20170301

REACTIONS (4)
  - Migraine [Recovering/Resolving]
  - Fatigue [Recovering/Resolving]
  - Influenza like illness [Recovering/Resolving]
  - Renal function test abnormal [Recovering/Resolving]
